FAERS Safety Report 8350332-X (Version None)
Quarter: 2012Q2

REPORT INFORMATION
  Report Type: 
  Country: None (occurrence: None)
  Receive Date: 20120510
  Receipt Date: 20120502
  Transmission Date: 20120825
  Serious: Yes (Hospitalization)
  Sender: FDA-Public Use
  Company Number: US-UCBSA-047881

PATIENT
  Age: 33 Year
  Sex: Female
  Weight: 59.4 kg

DRUGS (11)
  1. DIPHENOXYLATE HCL + ATROPINE SULFATE [Concomitant]
     Indication: CROHN'S DISEASE
  2. CIPROFLOXACIN HCL [Concomitant]
     Route: 042
     Dates: start: 20110822, end: 20110824
  3. PREDNISONE TAB [Concomitant]
     Indication: CROHN'S DISEASE
     Dates: start: 20030101
  4. CIMZIA [Suspect]
     Route: 058
     Dates: start: 20110602, end: 20110101
  5. CIMZIA [Suspect]
     Indication: CROHN'S DISEASE
     Route: 058
     Dates: start: 20110616
  6. PREDNISONE TAB [Concomitant]
     Dosage: DAILY DOSE: 40 MG
     Route: 048
     Dates: start: 20110824
  7. ACETAMINOPHEN [Concomitant]
     Indication: CROHN'S DISEASE
  8. FLAGYL [Concomitant]
     Indication: CROHN'S DISEASE
     Dates: start: 20030101
  9. PERCOCET [Concomitant]
     Indication: PAIN
     Dosage: 7.5/325 MG
     Route: 048
  10. FLAGYL [Concomitant]
     Dosage: 5MG/KG
     Route: 042
     Dates: start: 20110822, end: 20110824
  11. CIPROFLOXACIN HCL [Concomitant]
     Indication: CROHN'S DISEASE
     Dates: start: 20030101

REACTIONS (1)
  - CROHN'S DISEASE [None]
